FAERS Safety Report 21478128 (Version 1)
Quarter: 2022Q4

REPORT INFORMATION
  Report Type: Spontaneous
  Country: US (occurrence: US)
  Receive Date: 20221019
  Receipt Date: 20221019
  Transmission Date: 20230113
  Serious: No
  Sender: FDA-Public Use
  Company Number: US-PFIZER INC-202201192596

PATIENT
  Age: 68 Year
  Sex: Female
  Weight: 73.923 kg

DRUGS (1)
  1. PAXLOVID [Suspect]
     Active Substance: NIRMATRELVIR\RITONAVIR
     Indication: COVID-19 treatment
     Dosage: UNK, 2X/DAY (300MG NIRMATRELVIR, 100MG RITONAVIR)
     Dates: start: 20220916, end: 20220918

REACTIONS (6)
  - Gastrooesophageal reflux disease [Recovered/Resolved]
  - Dyspepsia [Recovered/Resolved]
  - Nausea [Recovered/Resolved]
  - Dysgeusia [Recovered/Resolved]
  - Illness [Unknown]
  - Lethargy [Unknown]

NARRATIVE: CASE EVENT DATE: 20220916
